FAERS Safety Report 12980774 (Version 1)
Quarter: 2016Q4

REPORT INFORMATION
  Report Type: Spontaneous
  Country: US (occurrence: US)
  Receive Date: 20161128
  Receipt Date: 20161128
  Transmission Date: 20170207
  Serious: No
  Sender: FDA-Public Use
  Company Number: US-PFIZER INC-2016549862

PATIENT
  Age: 32 Year
  Sex: Male
  Weight: 86.18 kg

DRUGS (1)
  1. VIAGRA [Suspect]
     Active Substance: SILDENAFIL CITRATE
     Dosage: 100 MG, ORAL, JUST ONCE
     Route: 048
     Dates: start: 20161122

REACTIONS (5)
  - Erection increased [Unknown]
  - Prescription drug used without a prescription [Unknown]
  - Painful erection [Unknown]
  - Intentional product misuse [Unknown]
  - Penile swelling [Unknown]

NARRATIVE: CASE EVENT DATE: 20161122
